FAERS Safety Report 13293894 (Version 2)
Quarter: 2017Q2

REPORT INFORMATION
  Report Type: Spontaneous
  Country: MX (occurrence: MX)
  Receive Date: 20170303
  Receipt Date: 20170427
  Transmission Date: 20170830
  Serious: Yes (Death)
  Sender: FDA-Public Use
  Company Number: MX-NOVOPROD-533600

PATIENT
  Age: 71 Year
  Sex: Female

DRUGS (1)
  1. RYZODEG 70/30 [Suspect]
     Active Substance: INSULIN ASPART\INSULIN DEGLUDEC
     Indication: PRODUCT USED FOR UNKNOWN INDICATION
     Dosage: 15 IU, QD (STOPPED APPROXIMATELY 8 DAYS AGO)
     Route: 065
     Dates: start: 20140904, end: 20160715

REACTIONS (2)
  - Renal failure [Fatal]
  - Neoplasm malignant [Fatal]
